FAERS Safety Report 9338360 (Version 1)
Quarter: 2013Q2

REPORT INFORMATION
  Report Type: Spontaneous
  Country: US (occurrence: None)
  Receive Date: 20130605
  Receipt Date: 20130605
  Transmission Date: 20140414
  Serious: No
  Sender: FDA-Public Use
  Company Number: None

PATIENT
  Age: 44 Year
  Sex: Male

DRUGS (1)
  1. STIVARGA [Suspect]
     Dosage: X 21
     Route: 048

REACTIONS (1)
  - Palmar-plantar erythrodysaesthesia syndrome [None]
